FAERS Safety Report 14310625 (Version 2)
Quarter: 2018Q1

REPORT INFORMATION
  Report Type: Spontaneous
  Country: DE (occurrence: DE)
  Receive Date: 20171220
  Receipt Date: 20180220
  Transmission Date: 20180509
  Serious: Yes (Hospitalization, Other)
  Sender: FDA-Public Use
  Company Number: DE-VISTAPHARM, INC.-VER201712-001357

PATIENT
  Age: 54 Year
  Sex: Female

DRUGS (16)
  1. VALPROIC ACID. [Suspect]
     Active Substance: VALPROIC ACID
  2. VALPROIC ACID. [Suspect]
     Active Substance: VALPROIC ACID
     Dates: start: 2012
  3. VALPROIC ACID. [Suspect]
     Active Substance: VALPROIC ACID
     Indication: SCHIZOAFFECTIVE DISORDER
     Dates: start: 2012
  4. VALPROIC ACID. [Suspect]
     Active Substance: VALPROIC ACID
     Dates: start: 2013
  5. VALPROIC ACID. [Suspect]
     Active Substance: VALPROIC ACID
     Dates: start: 2014
  6. QUETIAPINE. [Suspect]
     Active Substance: QUETIAPINE
     Indication: SCHIZOAFFECTIVE DISORDER
     Dates: start: 2013
  7. SERTRALINE [Concomitant]
     Active Substance: SERTRALINE HYDROCHLORIDE
     Indication: SCHIZOAFFECTIVE DISORDER
  8. MIRTAZAPINE. [Concomitant]
     Active Substance: MIRTAZAPINE
     Indication: DEPRESSIVE SYMPTOM
     Dates: start: 2013
  9. QUETIAPINE. [Suspect]
     Active Substance: QUETIAPINE
  10. PREGABALIN. [Concomitant]
     Active Substance: PREGABALIN
     Indication: SCHIZOAFFECTIVE DISORDER
  11. ARIPIPRAZOLE. [Concomitant]
     Active Substance: ARIPIPRAZOLE
     Indication: SCHIZOAFFECTIVE DISORDER
  12. PREGABALIN. [Concomitant]
     Active Substance: PREGABALIN
  13. QUETIAPINE. [Suspect]
     Active Substance: QUETIAPINE
  14. QUETIAPINE. [Suspect]
     Active Substance: QUETIAPINE
  15. OLANZAPINE. [Concomitant]
     Active Substance: OLANZAPINE
     Indication: SCHIZOAFFECTIVE DISORDER
     Dates: start: 2013
  16. SERTRALINE [Concomitant]
     Active Substance: SERTRALINE HYDROCHLORIDE

REACTIONS (3)
  - Drug interaction [Recovering/Resolving]
  - Extrapyramidal disorder [Recovering/Resolving]
  - Cognitive disorder [Recovering/Resolving]
